FAERS Safety Report 20328644 (Version 1)
Quarter: 2022Q1

REPORT INFORMATION
  Report Type: Other
  Country: US (occurrence: None)
  Receive Date: 20220112
  Receipt Date: 20220112
  Transmission Date: 20220423
  Serious: Yes (Hospitalization)
  Sender: FDA-Public Use
  Company Number: US-ROCHE-2995723

PATIENT
  Sex: Male
  Weight: 114.86 kg

DRUGS (8)
  1. OCREVUS [Suspect]
     Active Substance: OCRELIZUMAB
     Indication: Multiple sclerosis
     Route: 042
  2. AMLODIPINE [Concomitant]
     Active Substance: AMLODIPINE BESYLATE
  3. BACLOFEN [Concomitant]
     Active Substance: BACLOFEN
  4. BUPROPION [Concomitant]
     Active Substance: BUPROPION
  5. DALFAMPRIDINE [Concomitant]
     Active Substance: DALFAMPRIDINE
  6. FOLIC ACID [Concomitant]
     Active Substance: FOLIC ACID
  7. MELOXICAM [Concomitant]
     Active Substance: MELOXICAM
  8. MINERAL OIL [Concomitant]
     Active Substance: MINERAL OIL

REACTIONS (4)
  - Localised infection [Recovered/Resolved]
  - Pain in extremity [Recovered/Resolved]
  - Dyspnoea [Recovered/Resolved]
  - Erythema [Unknown]

NARRATIVE: CASE EVENT DATE: 20200101
